FAERS Safety Report 9883676 (Version 1)
Quarter: 2014Q1

REPORT INFORMATION
  Report Type: Spontaneous
  Country: US (occurrence: US)
  Receive Date: 20140210
  Receipt Date: 20140210
  Transmission Date: 20141002
  Serious: Yes (Life-Threatening, Hospitalization)
  Sender: FDA-Public Use
  Company Number: US-SUN PHARMACEUTICAL INDUSTRIES LTD-2014SUN00239

PATIENT
  Age: 53 Year
  Sex: Male

DRUGS (3)
  1. PANTOPRAZOLE SODIUM DR TABS, USP 40MG [Suspect]
     Indication: PEPTIC ULCER
     Dosage: 40 MG, QD
     Route: 048
  2. DILTIAZEM HYDROCHLORIDE [Concomitant]
     Route: 042
  3. HEPARIN [Concomitant]
     Indication: ANTICOAGULATION DRUG LEVEL

REACTIONS (3)
  - Torsade de pointes [Recovered/Resolved]
  - Ventricular tachycardia [Recovered/Resolved]
  - Hypomagnesaemia [Recovered/Resolved]
